FAERS Safety Report 20017769 (Version 1)
Quarter: 2021Q4

REPORT INFORMATION
  Report Type: Spontaneous
  Country: US (occurrence: US)
  Receive Date: 20211101
  Receipt Date: 20211101
  Transmission Date: 20220303
  Serious: Yes (Life-Threatening, Hospitalization)
  Sender: FDA-Public Use
  Company Number: US-drreddys-SPO/USA/21/0143161

PATIENT
  Age: 63 Year
  Sex: Female

DRUGS (2)
  1. HEPARIN SODIUM [Suspect]
     Active Substance: HEPARIN SODIUM
     Indication: Anticoagulant therapy
  2. ALTEPLASE [Concomitant]
     Active Substance: ALTEPLASE
     Indication: Pulmonary embolism
     Route: 042

REACTIONS (1)
  - Haemorrhagic infarction [Recovered/Resolved]
